FAERS Safety Report 5567434-3 (Version None)
Quarter: 2007Q4

REPORT INFORMATION
  Report Type: 
  Country: None (occurrence: None)
  Receive Date: 20071130
  Receipt Date: 20070911
  Transmission Date: 20080405
  Serious: No
  Sender: FDA-Public Use
  Company Number: US200709002290

PATIENT
  Age: 72 Year
  Sex: Male
  Weight: 90.7 kg

DRUGS (11)
  1. BYETTA [Suspect]
     Indication: TYPE 2 DIABETES MELLITUS
     Dosage: 5 UG, 2/D, SUBUCTANEOUS; 10 UG, 2/D, SUBCUTANEOUS
     Route: 058
     Dates: start: 20070801, end: 20070901
  2. BYETTA [Suspect]
     Indication: TYPE 2 DIABETES MELLITUS
     Dosage: 5 UG, 2/D, SUBUCTANEOUS; 10 UG, 2/D, SUBCUTANEOUS
     Route: 058
     Dates: start: 20070901
  3. GLUCOTROL [Concomitant]
  4. ZETIA [Concomitant]
  5. ACCUPRIL [Concomitant]
  6. ZIAC /01495201/ (BISOPROLOL, HYDROCHLOROTHIAZIDE) [Concomitant]
  7. CRESTOR [Concomitant]
  8. AMITRIPTYLINE HCL [Concomitant]
  9. MELLARIL [Concomitant]
  10. AVANDIA [Concomitant]
  11. ASPIRIN [Concomitant]

REACTIONS (6)
  - ASTHENIA [None]
  - BLOOD GLUCOSE INCREASED [None]
  - DIZZINESS [None]
  - FALL [None]
  - HYPOAESTHESIA FACIAL [None]
  - HYPOTENSION [None]
